FAERS Safety Report 5113968-5 (Version None)
Quarter: 2006Q3

REPORT INFORMATION
  Report Type: 
  Country: None (occurrence: None)
  Receive Date: 20060920
  Receipt Date: 20051010
  Transmission Date: 20061208
  Serious: Yes (Life-Threatening, Hospitalization)
  Sender: FDA-Public Use
  Company Number: 2005BH002262

PATIENT
  Age: 50 Year
  Sex: Female

DRUGS (7)
  1. SUPRANE [Suspect]
     Indication: HYSTERECTOMY
     Dosage: 5 PCT; INH
     Route: 055
     Dates: start: 20051003, end: 20051003
  2. DIPRIVAN [Suspect]
     Indication: HYSTERECTOMY
     Dates: start: 20051003, end: 20051003
  3. SUFENTA [Suspect]
     Indication: HYSTERECTOMY
     Dates: start: 20051003, end: 20051003
  4. PERFALGAN (PARACETAMOL) [Suspect]
     Indication: HYSTERECTOMY
     Dates: start: 20051003, end: 20051003
  5. KETOPROFEN [Suspect]
     Indication: HYSTERECTOMY
     Dates: start: 20051003, end: 20051003
  6. TRAMADOL HCL [Suspect]
     Indication: HYSTERECTOMY
     Dates: start: 20051003, end: 20051003
  7. CURARE ALKALOIDS (CURARE ALKALOIDS) [Suspect]
     Indication: HYSTERECTOMY
     Dates: start: 20051003, end: 20051003

REACTIONS (6)
  - HEPATIC FAILURE [None]
  - HEPATITIS TOXIC [None]
  - HYPERAMMONAEMIA [None]
  - LEFT VENTRICULAR FAILURE [None]
  - NERVOUS SYSTEM DISORDER [None]
  - RESPIRATORY DISTRESS [None]
